FAERS Safety Report 7821528-8 (Version None)
Quarter: 2011Q4

REPORT INFORMATION
  Report Type: 
  Country: None (occurrence: None)
  Receive Date: 20111018
  Receipt Date: 20111011
  Transmission Date: 20120403
  Serious: Yes (Other)
  Sender: FDA-Public Use
  Company Number: US-PFIZER INC-2011186336

PATIENT
  Sex: Female
  Weight: 59 kg

DRUGS (10)
  1. LORTAB [Concomitant]
     Indication: SPINAL DISORDER
  2. TIZANIDINE [Concomitant]
     Indication: MUSCLE RELAXANT THERAPY
     Dosage: 4 MG, 3X/DAY
     Route: 048
  3. ASPIRIN [Concomitant]
     Indication: ARTHRITIS
     Dosage: 325 MG 2 TABLETS 2 OR 3 TIMES A DAY
     Route: 048
  4. LIDODERM [Concomitant]
     Indication: PAIN
     Dosage: 5 %, 3X/DAY
     Route: 061
  5. LYRICA [Suspect]
     Indication: FIBROMYALGIA
     Dosage: 50 MG, DAILY
     Route: 048
     Dates: start: 20080101, end: 20101201
  6. LYRICA [Suspect]
     Dosage: 150 MG, 2X/DAY
  7. IMITREX [Concomitant]
     Indication: MIGRAINE
     Dosage: 100 MG, AS NEEDED
  8. LORTAB [Concomitant]
     Indication: PAIN
     Dosage: 7.5 MG, 3X/DAY
  9. AMBIEN [Concomitant]
     Indication: SLEEP DISORDER
     Dosage: 10 MG, AS NEEDED
  10. PROAIR HFA [Concomitant]
     Indication: ASTHMA
     Dosage: TWO PUFFS TWO TIMES A DAY

REACTIONS (7)
  - MEMORY IMPAIRMENT [None]
  - INFLUENZA [None]
  - WEIGHT DECREASED [None]
  - DIARRHOEA [None]
  - DECREASED APPETITE [None]
  - BEDRIDDEN [None]
  - SPINAL DISORDER [None]
